FAERS Safety Report 8768144 (Version 1)
Quarter: 2012Q4

REPORT INFORMATION
  Report Type: 
  Country: US (occurrence: US)
  Receive Date: 20120905
  Receipt Date: 20120905
  Transmission Date: 20130627
  Serious: Yes (Hospitalization)
  Sender: FDA-Public Use
  Company Number: US-GLAXOSMITHKLINE-A0875274A

PATIENT
  Age: 67 Year
  Sex: Male

DRUGS (1)
  1. AVANDIA [Suspect]
     Indication: DIABETES MELLITUS
     Dosage: 4MG Per day
     Route: 048
     Dates: start: 20001122, end: 20070530

REACTIONS (4)
  - Cardiac failure congestive [Not Recovered/Not Resolved]
  - Coronary artery bypass [Unknown]
  - Aortic valve repair [Unknown]
  - Aortic valve calcification [Unknown]
